FAERS Safety Report 5787320-3 (Version None)
Quarter: 2008Q2

REPORT INFORMATION
  Report Type: 
  Country: None (occurrence: None)
  Receive Date: 20080625
  Receipt Date: 20070918
  Transmission Date: 20081010
  Serious: No
  Sender: FDA-Public Use
  Company Number: US-ASTRAZENECA-2007UW22003

PATIENT
  Age: 5 Year
  Sex: Female

DRUGS (6)
  1. PULMICORT-100 [Suspect]
     Indication: DYSPNOEA
     Route: 055
  2. SINGULAIR [Concomitant]
  3. ALBUTEROL [Concomitant]
  4. PREDNISOLONE [Concomitant]
  5. ZITHROMAX [Concomitant]
  6. XOPENEX [Concomitant]

REACTIONS (1)
  - ASTHMA [None]
